FAERS Safety Report 14672153 (Version 3)
Quarter: 2018Q4

REPORT INFORMATION
  Report Type: Spontaneous
  Country: US (occurrence: US)
  Receive Date: 20180323
  Receipt Date: 20181206
  Transmission Date: 20190204
  Serious: Yes (Hospitalization, Other)
  Sender: FDA-Public Use
  Company Number: US-ASTRAZENECA-2018SE34851

PATIENT
  Age: 21090 Day
  Sex: Male
  Weight: 72.6 kg

DRUGS (81)
  1. CITRACAL [Concomitant]
     Active Substance: CALCIUM CITRATE
     Indication: OSTEOPOROSIS
     Route: 065
  2. TEKTURNA [Concomitant]
     Active Substance: ALISKIREN HEMIFUMARATE
     Route: 048
     Dates: start: 20110818
  3. LOSARTAN POTASSIUM. [Concomitant]
     Active Substance: LOSARTAN POTASSIUM
     Route: 048
     Dates: start: 20130125
  4. DOPAMINE [Concomitant]
     Active Substance: DOPAMINE\DOPAMINE HYDROCHLORIDE
     Route: 065
  5. DOXAZOSIN [Concomitant]
     Active Substance: DOXAZOSIN\DOXAZOSIN MESYLATE
     Route: 065
     Dates: start: 20051017
  6. FLUTICASONE. [Concomitant]
     Active Substance: FLUTICASONE
  7. HYDRALAZINE [Concomitant]
     Active Substance: HYDRALAZINE HYDROCHLORIDE
  8. CRESTOR [Concomitant]
     Active Substance: ROSUVASTATIN CALCIUM
     Indication: BLOOD CHOLESTEROL INCREASED
     Route: 048
     Dates: start: 2012
  9. IRON [Concomitant]
     Active Substance: IRON
     Indication: IRON DEFICIENCY
     Route: 065
  10. ZANAFLEX [Concomitant]
     Active Substance: TIZANIDINE HYDROCHLORIDE
     Indication: IRON DEFICIENCY
     Route: 048
     Dates: start: 20060130
  11. ISOSORBIDE. [Concomitant]
     Active Substance: ISOSORBIDE
     Indication: MUSCLE SPASMS
     Route: 065
     Dates: start: 2015
  12. BENAZEPRIL [Concomitant]
     Active Substance: BENAZEPRIL HYDROCHLORIDE
     Route: 048
     Dates: start: 20101101
  13. COLCHICINE. [Concomitant]
     Active Substance: COLCHICINE
     Route: 065
     Dates: start: 20091111
  14. KETOPROFEN. [Concomitant]
     Active Substance: KETOPROFEN
  15. VITAMIN D3 [Concomitant]
     Active Substance: CHOLECALCIFEROL
     Indication: OSTEOPOROSIS
     Route: 065
  16. SINGULAIR [Concomitant]
     Active Substance: MONTELUKAST SODIUM
     Indication: IRON DEFICIENCY
     Route: 065
     Dates: start: 20180520
  17. FLOMAX [Concomitant]
     Active Substance: TAMSULOSIN HYDROCHLORIDE
     Indication: BENIGN NEOPLASM OF PROSTATE
     Route: 048
     Dates: start: 20150601
  18. OXYCODONE [Concomitant]
     Active Substance: OXYCODONE
     Route: 065
     Dates: start: 20130313, end: 20130320
  19. MOBIC [Concomitant]
     Active Substance: MELOXICAM
     Route: 065
     Dates: start: 20051205
  20. FUROSEMIDE. [Concomitant]
     Active Substance: FUROSEMIDE
     Route: 065
     Dates: start: 20060308
  21. ALLOPURINOL. [Concomitant]
     Active Substance: ALLOPURINOL
  22. VALTREX [Concomitant]
     Active Substance: VALACYCLOVIR HYDROCHLORIDE
  23. LABETALOL [Concomitant]
     Active Substance: LABETALOL\LABETALOL HYDROCHLORIDE
  24. PANTOPRAZOLE [Suspect]
     Active Substance: PANTOPRAZOLE
     Indication: GASTROOESOPHAGEAL REFLUX DISEASE
     Dosage: GENERIC
     Route: 065
     Dates: start: 201305
  25. METFORMIN [Concomitant]
     Active Substance: METFORMIN HYDROCHLORIDE
     Indication: DIABETES MELLITUS
     Route: 065
     Dates: start: 2017
  26. FENOFIBRATE. [Concomitant]
     Active Substance: FENOFIBRATE
     Route: 048
     Dates: start: 20121220
  27. LORTAB [Concomitant]
     Active Substance: ACETAMINOPHEN\HYDROCODONE BITARTRATE
     Route: 065
     Dates: start: 20121220
  28. CHLORZOXAZONE. [Concomitant]
     Active Substance: CHLORZOXAZONE
     Route: 048
     Dates: start: 20130722, end: 20140903
  29. SUCRALFATE. [Concomitant]
     Active Substance: SUCRALFATE
     Route: 065
     Dates: start: 20130814
  30. MELOXICAM. [Concomitant]
     Active Substance: MELOXICAM
  31. MONTELUKAST [Concomitant]
     Active Substance: MONTELUKAST SODIUM
  32. NEXIUM [Suspect]
     Active Substance: ESOMEPRAZOLE MAGNESIUM
     Indication: GASTROOESOPHAGEAL REFLUX DISEASE
     Route: 048
     Dates: start: 1990
  33. NEXIUM [Suspect]
     Active Substance: ESOMEPRAZOLE MAGNESIUM
     Indication: GASTROOESOPHAGEAL REFLUX DISEASE
     Route: 048
     Dates: start: 20071114, end: 201304
  34. NEXIUM [Suspect]
     Active Substance: ESOMEPRAZOLE MAGNESIUM
     Indication: GASTROOESOPHAGEAL REFLUX DISEASE
     Route: 048
     Dates: start: 20071213
  35. PREVACID [Suspect]
     Active Substance: LANSOPRAZOLE
     Indication: GASTROOESOPHAGEAL REFLUX DISEASE
     Route: 065
     Dates: start: 1990
  36. PREVACID [Suspect]
     Active Substance: LANSOPRAZOLE
     Indication: GASTROOESOPHAGEAL REFLUX DISEASE
     Dosage: GENERIC
     Route: 065
     Dates: start: 20141015
  37. PANTOPRAZOLE [Suspect]
     Active Substance: PANTOPRAZOLE
     Indication: GASTROOESOPHAGEAL REFLUX DISEASE
     Dosage: GENERIC
     Route: 065
     Dates: start: 20130508
  38. ALLOPURINOL. [Concomitant]
     Active Substance: ALLOPURINOL
     Indication: IRON DEFICIENCY
     Route: 048
     Dates: start: 20060815, end: 20150704
  39. FLOMAX [Concomitant]
     Active Substance: TAMSULOSIN HYDROCHLORIDE
     Indication: BENIGN NEOPLASM OF PROSTATE
     Route: 065
     Dates: start: 2012
  40. ALENDRONATE [Concomitant]
     Active Substance: ALENDRONATE SODIUM
     Route: 065
     Dates: start: 20121220
  41. AMITIZA [Concomitant]
     Active Substance: LUBIPROSTONE
     Route: 048
  42. PROLIA [Concomitant]
     Active Substance: DENOSUMAB
     Route: 048
     Dates: start: 20130401, end: 20140903
  43. NABUMETONE. [Concomitant]
     Active Substance: NABUMETONE
     Route: 065
     Dates: start: 20070802
  44. MAGNESIUM OXIDE. [Concomitant]
     Active Substance: MAGNESIUM OXIDE
     Indication: MAGNESIUM DEFICIENCY
     Route: 048
     Dates: start: 20150126
  45. NEURONTIN [Concomitant]
     Active Substance: GABAPENTIN
     Route: 048
     Dates: start: 20120910, end: 20121012
  46. LEVALBUTEROL. [Concomitant]
     Active Substance: LEVALBUTEROL
     Route: 055
  47. TESTOSTERONE. [Concomitant]
     Active Substance: TESTOSTERONE
     Route: 030
  48. LOTREL [Concomitant]
     Active Substance: AMLODIPINE BESYLATE\BENAZEPRIL HYDROCHLORIDE
  49. CLARITHROMYCIN. [Concomitant]
     Active Substance: CLARITHROMYCIN
  50. COLCHICINE. [Concomitant]
     Active Substance: COLCHICINE
  51. TAMIFLU [Concomitant]
     Active Substance: OSELTAMIVIR PHOSPHATE
  52. TESTOSTERONE. [Concomitant]
     Active Substance: TESTOSTERONE
  53. SPIRONOLACTONE. [Concomitant]
     Active Substance: SPIRONOLACTONE
  54. PRILOSEC [Suspect]
     Active Substance: OMEPRAZOLE MAGNESIUM
     Indication: GASTROOESOPHAGEAL REFLUX DISEASE
     Route: 048
     Dates: start: 200711
  55. PREVACID [Suspect]
     Active Substance: LANSOPRAZOLE
     Indication: GASTROOESOPHAGEAL REFLUX DISEASE
     Route: 065
     Dates: start: 20140428
  56. PREDNISONE. [Concomitant]
     Active Substance: PREDNISONE
     Indication: ARTHRITIS
     Route: 048
     Dates: start: 20121220
  57. HYDRALAZINE [Concomitant]
     Active Substance: HYDRALAZINE HYDROCHLORIDE
     Indication: IRON DEFICIENCY
     Route: 065
     Dates: start: 2012
  58. CLONIDINE. [Concomitant]
     Active Substance: CLONIDINE
     Indication: IRON DEFICIENCY
     Route: 065
     Dates: start: 2012
  59. ATENOLOL. [Concomitant]
     Active Substance: ATENOLOL
     Route: 048
     Dates: start: 20060130
  60. ASPIRIN. [Concomitant]
     Active Substance: ASPIRIN
     Route: 048
     Dates: start: 20130515
  61. DIFLUNISAL. [Concomitant]
     Active Substance: DIFLUNISAL
     Route: 048
     Dates: start: 20050830
  62. LEVAQUIN [Concomitant]
     Active Substance: LEVOFLOXACIN
     Route: 065
     Dates: start: 20081105
  63. TIZANIDINE. [Concomitant]
     Active Substance: TIZANIDINE
  64. NABUMETONE. [Concomitant]
     Active Substance: NABUMETONE
  65. MISOPROSTOL. [Concomitant]
     Active Substance: MISOPROSTOL
  66. DIFLUNISAL. [Concomitant]
     Active Substance: DIFLUNISAL
  67. SINGULAIR [Concomitant]
     Active Substance: MONTELUKAST SODIUM
     Indication: IRON DEFICIENCY
     Route: 048
     Dates: start: 20140428
  68. LABETALOL [Concomitant]
     Active Substance: LABETALOL\LABETALOL HYDROCHLORIDE
     Indication: IRON DEFICIENCY
     Route: 065
     Dates: start: 2012
  69. TESTOSTERONE. [Concomitant]
     Active Substance: TESTOSTERONE
     Indication: BLOOD TESTOSTERONE DECREASED
     Route: 065
     Dates: start: 2015
  70. MAGNESIUM OXIDE. [Concomitant]
     Active Substance: MAGNESIUM OXIDE
     Indication: MAGNESIUM DEFICIENCY
     Route: 065
     Dates: start: 2012
  71. VITAMIN B12 [Concomitant]
     Active Substance: CYANOCOBALAMIN
     Indication: ARTHRITIS
     Route: 065
  72. FOSAMAX [Concomitant]
     Active Substance: ALENDRONATE SODIUM
     Route: 048
     Dates: start: 20121220
  73. NEURONTIN [Concomitant]
     Active Substance: GABAPENTIN
     Route: 048
     Dates: start: 20110919
  74. HYDROCHLOROTHIAZIDE. [Concomitant]
     Active Substance: HYDROCHLOROTHIAZIDE
     Route: 048
     Dates: start: 20121220
  75. ACETAMINOPHEN. [Concomitant]
     Active Substance: ACETAMINOPHEN
     Route: 065
     Dates: start: 20130313, end: 20130320
  76. NORVASC [Concomitant]
     Active Substance: AMLODIPINE BESYLATE
     Route: 048
     Dates: start: 20130102, end: 20150407
  77. DILTIAZEM. [Concomitant]
     Active Substance: DILTIAZEM
     Route: 065
     Dates: start: 20060403
  78. AMOXICILLIN. [Concomitant]
     Active Substance: AMOXICILLIN
  79. METHYLPREDNISOLONE. [Concomitant]
     Active Substance: METHYLPREDNISOLONE
  80. CHLORZOXAZONE. [Concomitant]
     Active Substance: CHLORZOXAZONE
  81. FLUOROMETHOLONE. [Concomitant]
     Active Substance: FLUOROMETHOLONE

REACTIONS (3)
  - Renal failure [Unknown]
  - Acute kidney injury [Not Recovered/Not Resolved]
  - Chronic kidney disease [Not Recovered/Not Resolved]

NARRATIVE: CASE EVENT DATE: 20121220
